FAERS Safety Report 20151139 (Version 1)
Quarter: 2021Q4

REPORT INFORMATION
  Report Type: Spontaneous
  Country: US (occurrence: None)
  Receive Date: 20211204
  Receipt Date: 20211204
  Transmission Date: 20220303
  Serious: Yes (Hospitalization)
  Sender: FDA-Public Use
  Company Number: None

PATIENT
  Age: 31 Year
  Sex: Female
  Weight: 108.9 kg

DRUGS (7)
  1. CYCLOPHOSPHAMIDE [Suspect]
     Active Substance: CYCLOPHOSPHAMIDE
     Dates: end: 20211117
  2. CYTARABINE [Suspect]
     Active Substance: CYTARABINE
     Dates: end: 20211128
  3. MERCAPTOPURINE [Suspect]
     Active Substance: MERCAPTOPURINE
     Dates: end: 20211201
  4. METHOTREXATE [Suspect]
     Active Substance: METHOTREXATE
     Dates: end: 20211117
  5. PEGASPARGASE [Suspect]
     Active Substance: PEGASPARGASE
     Dosage: OTHER QUANTITY : 7500 UNIT ;?
     Dates: end: 20211201
  6. RITUXIMAB [Suspect]
     Active Substance: RITUXIMAB
     Dates: end: 20211124
  7. VINCRISTINE SULFATE [Suspect]
     Active Substance: VINCRISTINE SULFATE
     Dates: end: 20211201

REACTIONS (9)
  - Vaginal haemorrhage [None]
  - Vaginal haemorrhage [None]
  - Dizziness postural [None]
  - Dyspnoea [None]
  - Postural orthostatic tachycardia syndrome [None]
  - Cough [None]
  - Anaemia [None]
  - Thrombocytopenia [None]
  - Parainfluenzae virus infection [None]

NARRATIVE: CASE EVENT DATE: 20211202
